FAERS Safety Report 8394085-8 (Version None)
Quarter: 2012Q2

REPORT INFORMATION
  Report Type: 
  Country: None (occurrence: None)
  Receive Date: 20120530
  Receipt Date: 20120521
  Transmission Date: 20120825
  Serious: Yes (Other)
  Sender: FDA-Public Use
  Company Number: US-JNJFOC-20120516901

PATIENT
  Sex: Male

DRUGS (2)
  1. REMICADE [Suspect]
     Indication: ARTHRALGIA
     Route: 042
  2. REMICADE [Suspect]
     Indication: CROHN'S DISEASE
     Route: 042

REACTIONS (4)
  - TUBERCULOSIS [None]
  - CROHN'S DISEASE [None]
  - SEPSIS [None]
  - ROTATOR CUFF REPAIR [None]
